FAERS Safety Report 24725987 (Version 2)
Quarter: 2024Q4

REPORT INFORMATION
  Report Type: Spontaneous
  Country: CN (occurrence: CN)
  Receive Date: 20241212
  Receipt Date: 20241224
  Transmission Date: 20250115
  Serious: Yes (Other)
  Sender: AMGEN
  Company Number: CN-AMGEN-CHNSP2024238416

PATIENT
  Age: 36 Year
  Sex: Female

DRUGS (2)
  1. FILGRASTIM [Suspect]
     Active Substance: FILGRASTIM
     Indication: Haematopoietic stem cell mobilisation
     Dosage: 300 MICROGRAM, QD (IN THE MORNIG), THIRD DAY, ADDITIONAL 300MCG G-CSF WAS ADMINISTRATED, ON THE FOUR
     Route: 058
  2. NORETHINDRONE [Concomitant]
     Active Substance: NORETHINDRONE
     Indication: Menstruation delayed
     Dosage: 5000 MICROGRAM, TID, (30000UG IN 48 HOURS)

REACTIONS (1)
  - Neutropenia [Recovered/Resolved]
